FAERS Safety Report 17150364 (Version 2)
Quarter: 2020Q4

REPORT INFORMATION
  Report Type: Report from Study
  Country: JP (occurrence: JP)
  Receive Date: 20191213
  Receipt Date: 20201127
  Transmission Date: 20210113
  Serious: Yes (Life-Threatening, Hospitalization, Other)
  Sender: FDA-Public Use
  Company Number: JP-VIIV HEALTHCARE LIMITED-JP2018JPN226114

PATIENT
  Age: 5 Decade
  Sex: Male

DRUGS (57)
  1. DAIPHEN COMBINATION TABLETS [Concomitant]
     Indication: PROPHYLAXIS
     Dosage: UNK
     Dates: start: 20170715, end: 20171114
  2. FAMOTIDINE. [Concomitant]
     Active Substance: FAMOTIDINE
     Indication: PROPHYLAXIS
     Dosage: UNK
     Dates: start: 20171024, end: 20171122
  3. FILGRASTIM BS INJECTION [Concomitant]
     Dosage: UNK
     Dates: start: 20170918, end: 20170928
  4. DIAMOX SEQUELS [Concomitant]
     Active Substance: ACETAZOLAMIDE
     Indication: PROPHYLAXIS
     Dosage: UNK
     Dates: start: 20170801, end: 20170804
  5. LANSOPRAZOLE-OD TABLETS [Concomitant]
     Indication: PROPHYLAXIS
     Dosage: UNK
     Dates: start: 20170719, end: 201801
  6. ZITHROMAC [Concomitant]
     Active Substance: AZITHROMYCIN DIHYDRATE
     Indication: PROPHYLAXIS
     Dosage: UNK, WE
     Dates: start: 20170830, end: 201801
  7. LEUCOVORIN. [Concomitant]
     Active Substance: LEUCOVORIN
     Indication: PROPHYLAXIS
     Dosage: UNK
     Dates: start: 20170802, end: 20170804
  8. GRANISETRON HYDROCHLORIDE INTRAVENOUS INFUSION [Concomitant]
     Indication: PROPHYLAXIS
     Dosage: UNK
     Dates: start: 20170718, end: 20170718
  9. GRANISETRON HYDROCHLORIDE INTRAVENOUS INFUSION [Concomitant]
     Dosage: UNK
     Dates: start: 20171024, end: 20171028
  10. FUROSEMIDE. [Concomitant]
     Active Substance: FUROSEMIDE
     Dosage: UNK
     Dates: start: 20170719, end: 20170720
  11. DIAMOX SEQUELS [Concomitant]
     Active Substance: ACETAZOLAMIDE
     Dosage: UNK
     Dates: start: 20171004, end: 20171010
  12. DIAMOX SEQUELS [Concomitant]
     Active Substance: ACETAZOLAMIDE
     Dosage: UNK
     Dates: start: 20171024, end: 20171029
  13. UROMITEXAN [Concomitant]
     Active Substance: MESNA
     Dosage: UNK
     Dates: start: 20170912, end: 20170916
  14. CLENAFIN [Concomitant]
     Active Substance: EFINACONAZOLE
     Dosage: UNK
  15. MINOMYCIN [Concomitant]
     Active Substance: MINOCYCLINE HYDROCHLORIDE
     Dosage: UNK
     Dates: end: 20170720
  16. GRANISETRON HYDROCHLORIDE INTRAVENOUS INFUSION [Concomitant]
     Dosage: UNK
     Dates: start: 20171115, end: 20171119
  17. MAGNESIUM OXIDE TABLET [Concomitant]
     Indication: PROPHYLAXIS
     Dosage: UNK
     Dates: start: 20170804, end: 20171004
  18. LEUCOVORIN. [Concomitant]
     Active Substance: LEUCOVORIN
     Dosage: UNK
     Dates: start: 20171026, end: 20171030
  19. UROMITEXAN [Concomitant]
     Active Substance: MESNA
     Indication: PROPHYLAXIS
     Dosage: UNK
     Dates: start: 20170731, end: 20170804
  20. LAMISIL [Concomitant]
     Active Substance: TERBINAFINE HYDROCHLORIDE
     Dosage: UNK
  21. FEBURIC TABLETS [Concomitant]
     Active Substance: FEBUXOSTAT
     Indication: PROPHYLAXIS
     Dosage: UNK
     Dates: start: 20170718, end: 20170802
  22. GRANISETRON HYDROCHLORIDE INTRAVENOUS INFUSION [Concomitant]
     Dosage: UNK
     Dates: start: 20170912, end: 20170916
  23. GRANISETRON HYDROCHLORIDE INTRAVENOUS INFUSION [Concomitant]
     Dosage: UNK
     Dates: start: 20171003, end: 20171007
  24. FUROSEMIDE. [Concomitant]
     Active Substance: FUROSEMIDE
     Indication: PROPHYLAXIS
     Dosage: UNK
     Dates: start: 20170717, end: 20170717
  25. FILGRASTIM BS INJECTION [Concomitant]
     Indication: PROPHYLAXIS
     Dosage: UNK
     Dates: start: 20170720, end: 20170720
  26. FILGRASTIM BS INJECTION [Concomitant]
     Dosage: UNK
     Dates: start: 20171121, end: 20171130
  27. FILGRASTIM BS INJECTION [Concomitant]
     Dosage: UNK
     Dates: start: 20171205, end: 20171206
  28. HEMOCURON [Concomitant]
     Active Substance: TRIBENOSIDE
     Dosage: UNK
     Dates: start: 20170525, end: 20170726
  29. MEYLON INJECTION [Concomitant]
     Dosage: UNK
     Dates: start: 20171003, end: 20171007
  30. ABACAVIRSULPHATE+DOLUTEGRAVIR+LAMIVUDINE [Suspect]
     Active Substance: ABACAVIR SULFATE\DOLUTEGRAVIR SODIUM\LAMIVUDINE
     Indication: HIV INFECTION
     Dosage: 1 DF, 1D
     Route: 048
     Dates: start: 20160609
  31. VICCLOX TABLETS [Concomitant]
     Indication: PROPHYLAXIS
     Dosage: UNK
     Dates: start: 20170715, end: 201802
  32. OMEPRAZOLE INJECTION [Concomitant]
     Indication: PROPHYLAXIS
     Dosage: UNK
     Dates: start: 20170715, end: 20170718
  33. FILGRASTIM BS INJECTION [Concomitant]
     Dosage: UNK
     Dates: start: 20170806, end: 20170815
  34. FILGRASTIM BS INJECTION [Concomitant]
     Dosage: UNK
     Dates: start: 20171010, end: 20171020
  35. DIAMOX SEQUELS [Concomitant]
     Active Substance: ACETAZOLAMIDE
     Dosage: UNK
     Dates: start: 20170822, end: 20170828
  36. DIAMOX SEQUELS [Concomitant]
     Active Substance: ACETAZOLAMIDE
     Dosage: UNK
     Dates: start: 20170913, end: 20170915
  37. DIAMOX SEQUELS [Concomitant]
     Active Substance: ACETAZOLAMIDE
     Indication: PROPHYLAXIS
     Dosage: UNK
     Dates: start: 20170824, end: 20171029
  38. LEUCOVORIN. [Concomitant]
     Active Substance: LEUCOVORIN
     Dosage: UNK
     Dates: start: 20170914, end: 20170916
  39. LEUCOVORIN. [Concomitant]
     Active Substance: LEUCOVORIN
     Dosage: UNK
     Dates: start: 20171005, end: 20171009
  40. UROMITEXAN [Concomitant]
     Active Substance: MESNA
     Dosage: UNK
     Dates: start: 20171024, end: 20171028
  41. BENAMBAX [Concomitant]
     Active Substance: PENTAMIDINE
     Indication: PROPHYLAXIS
     Dosage: UNK
     Dates: start: 20171113, end: 20171113
  42. MEYLON INJECTION [Concomitant]
     Indication: PROPHYLAXIS
     Dosage: UNK
     Dates: start: 20170731, end: 20170804
  43. GRANISETRON HYDROCHLORIDE INTRAVENOUS INFUSION [Concomitant]
     Dosage: UNK
     Dates: start: 20170724, end: 20170804
  44. MEYLON INJECTION [Concomitant]
     Dosage: UNK
     Dates: start: 20170912, end: 20170915
  45. MEYLON INJECTION [Concomitant]
     Dosage: UNK
     Dates: start: 20171024, end: 20171031
  46. BIOFERMIN R (JAPAN) [Concomitant]
     Indication: PROPHYLAXIS
     Dosage: UNK
     Dates: start: 20170906, end: 20171218
  47. ITRIZOLE ORAL SOLUTION [Concomitant]
     Indication: PROPHYLAXIS
     Dosage: UNK
     Dates: start: 20170715, end: 201801
  48. GRANISETRON HYDROCHLORIDE INTRAVENOUS INFUSION [Concomitant]
     Dosage: UNK
     Dates: start: 20170822, end: 20170826
  49. FUROSEMIDE. [Concomitant]
     Active Substance: FUROSEMIDE
     Dosage: UNK
     Dates: start: 20170917, end: 20170917
  50. FILGRASTIM BS INJECTION [Concomitant]
     Dosage: UNK
     Dates: start: 20170722, end: 20170723
  51. FILGRASTIM BS INJECTION [Concomitant]
     Dosage: UNK
     Dates: start: 20170729, end: 20170730
  52. FILGRASTIM BS INJECTION [Concomitant]
     Dosage: UNK
     Dates: start: 20170829, end: 20170906
  53. SENNOSIDE TABLETS [Concomitant]
     Active Substance: SENNOSIDES
     Indication: PROPHYLAXIS
     Dosage: UNK
     Dates: start: 20170804, end: 20171030
  54. LEUCOVORIN. [Concomitant]
     Active Substance: LEUCOVORIN
     Dosage: UNK
     Dates: start: 20170824, end: 20170828
  55. FUROSEMIDE. [Concomitant]
     Active Substance: FUROSEMIDE
     Dosage: UNK
     Dates: start: 20171116, end: 20171122
  56. LEVOFLOXACIN. [Concomitant]
     Active Substance: LEVOFLOXACIN
     Indication: PROPHYLAXIS
     Dosage: UNK
     Dates: start: 20170823, end: 20171017
  57. MEYLON INJECTION [Concomitant]
     Dosage: UNK
     Dates: start: 20170822, end: 20170828

REACTIONS (4)
  - Renal impairment [Recovered/Resolved with Sequelae]
  - Nausea [Recovered/Resolved]
  - Burkitt^s lymphoma [Recovering/Resolving]
  - Goitre [Recovered/Resolved]

NARRATIVE: CASE EVENT DATE: 20170622
